FAERS Safety Report 7282497-5 (Version None)
Quarter: 2011Q1

REPORT INFORMATION
  Report Type: 
  Country: None (occurrence: None)
  Receive Date: 20110127
  Receipt Date: 20110113
  Transmission Date: 20110831
  Serious: No
  Sender: FDA-Public Use
  Company Number: 2011-00018

PATIENT
  Age: 72 Year
  Sex: Female
  Weight: 60.782 kg

DRUGS (4)
  1. PRILOSEC [Concomitant]
  2. ZICAM COLD REMEDY RAPIDMELTS W/VITAMIN C + ECHINACEA [Suspect]
     Dosage: 2 DOSES
     Dates: start: 20110111, end: 20110111
  3. ATENOLOL [Concomitant]
  4. TRICOR [Concomitant]

REACTIONS (2)
  - AGEUSIA [None]
  - ANOSMIA [None]
